FAERS Safety Report 12504752 (Version 1)
Quarter: 2016Q2

REPORT INFORMATION
  Report Type: Spontaneous
  Country: DE (occurrence: DE)
  Receive Date: 20160628
  Receipt Date: 20160628
  Transmission Date: 20160815
  Serious: Yes (Hospitalization, Other)
  Sender: FDA-Public Use
  Company Number: GXKR2016DE002905

PATIENT

DRUGS (3)
  1. NORFLOXACIN [Suspect]
     Active Substance: NORFLOXACIN
     Indication: CYSTITIS
     Dosage: 400 MG, UNK
     Route: 048
     Dates: start: 20120710
  2. CIPROFLOXACIN. [Suspect]
     Active Substance: CIPROFLOXACIN
     Dosage: UNK UKN, UNK
     Route: 048
  3. CIPROFLOXACIN. [Suspect]
     Active Substance: CIPROFLOXACIN
     Indication: CYSTITIS
     Dosage: UNK MG, UNK
     Route: 048

REACTIONS (17)
  - Nausea [Unknown]
  - Abdominal pain upper [Unknown]
  - Panic attack [Recovered/Resolved]
  - Visual impairment [Unknown]
  - Tinnitus [Unknown]
  - Dyspnoea [Recovered/Resolved]
  - Tremor [Unknown]
  - Blood pressure increased [Recovered/Resolved]
  - Disturbance in attention [Unknown]
  - Anxiety [Unknown]
  - Presyncope [Recovered/Resolved]
  - Muscular weakness [Unknown]
  - Hypoaesthesia [Unknown]
  - Arthralgia [Recovered/Resolved with Sequelae]
  - Dizziness [Unknown]
  - Fatigue [Unknown]
  - Facial paralysis [Recovered/Resolved]

NARRATIVE: CASE EVENT DATE: 2012
